FAERS Safety Report 7617659-8 (Version None)
Quarter: 2011Q3

REPORT INFORMATION
  Report Type: 
  Country: None (occurrence: None)
  Receive Date: 20110718
  Receipt Date: 20110708
  Transmission Date: 20111222
  Serious: Yes (Life-Threatening, Hospitalization)
  Sender: FDA-Public Use
  Company Number: JP-BAYER-201011132BYL

PATIENT
  Age: 70 Year
  Sex: Male

DRUGS (10)
  1. NEXAVAR [Suspect]
     Dosage: 400 MG, QD
     Route: 048
     Dates: start: 20091029, end: 20100101
  2. LIVACT [Concomitant]
     Indication: HYPOALBUMINAEMIA
     Dosage: DAILY DOSE 12.45 G
     Route: 048
     Dates: start: 20091112
  3. HALCION [Concomitant]
     Indication: INSOMNIA
     Dosage: DAILY DOSE .25 MG
     Route: 048
     Dates: start: 20060314
  4. BISOLVON [Concomitant]
     Indication: BRONCHITIS
     Dosage: DAILY DOSE 12 MG
     Route: 048
     Dates: start: 20091029
  5. ZANTAC [Concomitant]
     Indication: GASTROOESOPHAGEAL REFLUX DISEASE
     Dosage: DAILY DOSE 300 MG
     Route: 048
     Dates: start: 20050727
  6. METHYCOBAL [Concomitant]
     Indication: NEUROPATHY PERIPHERAL
     Dosage: DAILY DOSE 1500 ?G
     Route: 048
     Dates: start: 20090226
  7. NEXAVAR [Suspect]
     Indication: HEPATIC NEOPLASM MALIGNANT
     Dosage: 400 MG, BID
     Route: 048
     Dates: start: 20091001, end: 20091028
  8. AMINOLEBAN EN [Concomitant]
     Indication: HYPOALBUMINAEMIA
     Dosage: DAILY DOSE 50 G
     Route: 048
     Dates: start: 20091126
  9. GLAKAY [Concomitant]
     Indication: OSTEOPOROSIS
     Dosage: DAILY DOSE 60 MG
     Route: 048
     Dates: start: 20050727
  10. SHAKUYAKUKANZOUTOU [Concomitant]
     Indication: CONVULSION
     Dosage: DAILY DOSE 5 G
     Route: 048
     Dates: start: 20090226

REACTIONS (4)
  - PALMAR-PLANTAR ERYTHRODYSAESTHESIA SYNDROME [None]
  - PYREXIA [None]
  - INTRA-ABDOMINAL HAEMORRHAGE [None]
  - LIVER CARCINOMA RUPTURED [None]
